FAERS Safety Report 6537890-2 (Version None)
Quarter: 2010Q1

REPORT INFORMATION
  Report Type: 
  Country: None (occurrence: None)
  Receive Date: 20100114
  Receipt Date: 20100106
  Transmission Date: 20100710
  Serious: Yes (Life-Threatening, Hospitalization)
  Sender: FDA-Public Use
  Company Number: GXKR2010US00537

PATIENT
  Age: 67 Year
  Sex: Female

DRUGS (2)
  1. DIPYRIDAMOLE (NGX) [Suspect]
     Indication: CARDIAC PHARMACOLOGIC STRESS TEST
  2. METOPROLOL (NGX) [Suspect]
     Dosage: 50 MG, BID
     Route: 065

REACTIONS (5)
  - CARDIAC ARREST [None]
  - CHEST DISCOMFORT [None]
  - DIZZINESS [None]
  - LOSS OF CONSCIOUSNESS [None]
  - NAUSEA [None]
